FAERS Safety Report 7964826-X (Version None)
Quarter: 2011Q4

REPORT INFORMATION
  Report Type: 
  Country: None (occurrence: None)
  Receive Date: 20111208
  Receipt Date: 20111202
  Transmission Date: 20120403
  Serious: Yes (Death, Hospitalization)
  Sender: FDA-Public Use
  Company Number: US-ROCHE-1018489

PATIENT
  Age: 55 Year
  Sex: Female
  Weight: 63.3 kg

DRUGS (15)
  1. AVASTIN [Suspect]
     Indication: OVARIAN EPITHELIAL CANCER
     Dosage: CYCLE: 21 DAYS; TOTAL NUMBER OF COURSE: 22; LAST DOSE ADMINISTERED: 06 AUGUST 2008
     Route: 042
     Dates: start: 20070523
  2. PEMETREXED [Concomitant]
     Dates: start: 20110601, end: 20110701
  3. CARBOPLATIN [Suspect]
     Dates: start: 20091201, end: 20100601
  4. GEMCITABINE HYDROCHLORIDE [Suspect]
     Indication: OVARIAN EPITHELIAL CANCER
     Dates: start: 20091201, end: 20100601
  5. OXALIPLATIN [Suspect]
     Indication: OVARIAN EPITHELIAL CANCER
     Dates: start: 20110201, end: 20110501
  6. FLUOROURACIL [Suspect]
     Indication: OVARIAN EPITHELIAL CANCER
     Dates: start: 20110201, end: 20110501
  7. AVASTIN [Suspect]
     Indication: OVARIAN EPITHELIAL CANCER
     Dates: start: 20081101, end: 20090301
  8. PACLITAXEL [Suspect]
     Indication: OVARIAN EPITHELIAL CANCER
     Dates: start: 20081101, end: 20090301
  9. LEUCOVORIN CALCIUM [Suspect]
     Indication: OVARIAN EPITHELIAL CANCER
     Dates: start: 20110201, end: 20110501
  10. AVASTIN [Suspect]
     Dates: start: 20090301, end: 20091101
  11. TAXOTERE [Concomitant]
     Dates: start: 20110701, end: 20110801
  12. CARBOPLATIN [Suspect]
     Indication: OVARIAN EPITHELIAL CANCER
     Dates: start: 20081101, end: 20090301
  13. DOXIL [Concomitant]
     Dates: start: 20101001, end: 20110101
  14. AVASTIN [Suspect]
     Dates: start: 20091201, end: 20100601
  15. AVASTIN [Suspect]
     Dates: start: 20100601, end: 20100901

REACTIONS (1)
  - MYELODYSPLASTIC SYNDROME [None]
